FAERS Safety Report 6347583-2 (Version None)
Quarter: 2009Q3

REPORT INFORMATION
  Report Type: 
  Country: None (occurrence: None)
  Receive Date: 20090909
  Receipt Date: 20090909
  Transmission Date: 20100115
  Serious: Yes (Life-Threatening)
  Sender: FDA-Public Use
  Company Number: None

PATIENT
  Sex: Female
  Weight: 103.8737 kg

DRUGS (1)
  1. LORATADINE [Suspect]
     Indication: RHINITIS
     Dosage: 10MG DAILY PO
     Route: 048
     Dates: start: 20080202, end: 20080203

REACTIONS (1)
  - URTICARIA [None]
